FAERS Safety Report 16186431 (Version 1)
Quarter: 2020Q3

REPORT INFORMATION
  Report Type: Report from Study
  Country: US (occurrence: US)
  Receive Date: 20190411
  Receipt Date: 20190411
  Transmission Date: 20201105
  Serious: Yes (Hospitalization, Other)
  Sender: FDA-Public Use
  Company Number: US-PFIZER INC-2019102230

PATIENT
  Age: 53 Year
  Sex: Female
  Weight: 110.4 kg

DRUGS (28)
  1. CRESEMBA [Concomitant]
     Active Substance: ISAVUCONAZONIUM SULFATE
     Indication: ANTIFUNGAL TREATMENT
     Dosage: 372 MG, UNK
     Route: 042
     Dates: start: 20190213, end: 20190324
  2. MEROPENEM. [Concomitant]
     Active Substance: MEROPENEM
  3. BACTRIM [Concomitant]
     Active Substance: SULFAMETHOXAZOLE\TRIMETHOPRIM
     Indication: INFECTION PROPHYLAXIS
     Dosage: 1 TAB MWF, DAILY
     Route: 048
     Dates: start: 20190301
  4. IPRATROPIUM [Concomitant]
     Active Substance: IPRATROPIUM
     Indication: DYSPNOEA
     Dosage: 0.5 MG, Q6H
     Dates: start: 20190217, end: 20190324
  5. PROTONIX [Concomitant]
     Active Substance: PANTOPRAZOLE SODIUM
     Indication: ULCER
     Dosage: 40 MG, Q24H
     Route: 042
     Dates: start: 20190213
  6. SOLU?MEDROL [Concomitant]
     Active Substance: METHYLPREDNISOLONE SODIUM SUCCINATE
  7. CYMBALTA [Concomitant]
     Active Substance: DULOXETINE HYDROCHLORIDE
     Indication: NEUROPATHY PERIPHERAL
     Dosage: 30 MG, BID
     Route: 048
     Dates: start: 20190216
  8. TALAZOPARIB. [Suspect]
     Active Substance: TALAZOPARIB
     Indication: ACUTE MYELOID LEUKAEMIA
     Dosage: 1 MG, DAILY (QD) D1?28
     Route: 048
     Dates: start: 20190222
  9. METHYLPREDNISOLONE. [Suspect]
     Active Substance: METHYLPREDNISOLONE
     Indication: ORGANISING PNEUMONIA
     Dosage: 40 MG, Q12H
     Route: 042
     Dates: start: 20190214, end: 20190217
  10. DECITABINE. [Suspect]
     Active Substance: DECITABINE
     Dosage: 44.4 MG, CYCLIC (D1?10)
     Route: 042
     Dates: start: 20190222, end: 20190303
  11. PREDNISONE. [Suspect]
     Active Substance: PREDNISONE
     Dosage: 50 MG, BID
     Route: 048
     Dates: start: 20190312
  12. AMIKACIN. [Concomitant]
     Active Substance: AMIKACIN
  13. NOVOLOG [Concomitant]
     Active Substance: INSULIN ASPART
     Indication: DIABETES MELLITUS
     Dosage: INSULIN SLIDING SCALE SQ QID ACHS
     Route: 058
     Dates: start: 20190217
  14. ACYCLOVIR [ACICLOVIR] [Concomitant]
     Active Substance: ACYCLOVIR
     Indication: ANTIVIRAL TREATMENT
     Dosage: 400 MG Q12H
     Route: 048
     Dates: start: 20190212
  15. ONDANSETRON [Concomitant]
     Active Substance: ONDANSETRON
  16. MELATONIN [Concomitant]
     Active Substance: MELATONIN
     Indication: INSOMNIA
     Dosage: 5 MG, Q BEDTIME
     Route: 048
     Dates: start: 20190216
  17. AMLODIPINE [Concomitant]
     Active Substance: AMLODIPINE BESYLATE
     Indication: HYPERTENSION
     Dosage: 10 MG, DAILY
     Route: 048
     Dates: start: 20190325
  18. NORCO [Concomitant]
     Active Substance: ACETAMINOPHEN\HYDROCODONE BITARTRATE
  19. LANTUS [Concomitant]
     Active Substance: INSULIN GLARGINE
     Indication: DIABETES MELLITUS
     Dosage: UNK UNK, DAILY AC
     Route: 058
     Dates: start: 20190217
  20. PREDNISONE. [Suspect]
     Active Substance: PREDNISONE
     Indication: ORGANISING PNEUMONIA
     Dosage: 40 MG, UNK
     Route: 048
     Dates: start: 20190221, end: 20190303
  21. DULOXETINE. [Concomitant]
     Active Substance: DULOXETINE
  22. LOSARTAN. [Concomitant]
     Active Substance: LOSARTAN
     Indication: HYPERTENSION
     Dosage: 25 MG, DAILY
     Route: 048
     Dates: start: 20190222, end: 20190320
  23. CEFEPIME [Concomitant]
     Active Substance: CEFEPIME HYDROCHLORIDE
  24. ACETAMINOPHEN. [Concomitant]
     Active Substance: ACETAMINOPHEN
  25. VANCOMYCIN [Concomitant]
     Active Substance: VANCOMYCIN
     Indication: INFECTION PROPHYLAXIS
     Dosage: DOSING PER PHARMACY
     Route: 042
     Dates: start: 20190223, end: 20190323
  26. KYTRIL [Concomitant]
     Active Substance: GRANISETRON HYDROCHLORIDE
     Indication: ANTIEMETIC SUPPORTIVE CARE
     Dosage: 1 MG, DAILY 30 MINUTES PRIOR TO DECITABINE
  27. METHYLPREDNISOLONE. [Suspect]
     Active Substance: METHYLPREDNISOLONE
     Dosage: 20 MG, Q12H
     Route: 042
     Dates: start: 20190217, end: 20190221
  28. METHYLPREDNISOLONE. [Suspect]
     Active Substance: METHYLPREDNISOLONE
     Dosage: 40 MG, Q12H
     Route: 042
     Dates: start: 20190304, end: 20190311

REACTIONS (1)
  - Febrile neutropenia [Not Recovered/Not Resolved]

NARRATIVE: CASE EVENT DATE: 20190223
